FAERS Safety Report 24329392 (Version 1)
Quarter: 2024Q3

REPORT INFORMATION
  Report Type: Spontaneous
  Country: US (occurrence: US)
  Receive Date: 20240917
  Receipt Date: 20240917
  Transmission Date: 20241017
  Serious: No
  Sender: LANNETT
  Company Number: LANN2400563

PATIENT

DRUGS (1)
  1. LACTULOSE [Suspect]
     Active Substance: LACTULOSE
     Indication: Product used for unknown indication
     Dosage: UNK
     Route: 065

REACTIONS (4)
  - Vomiting [Unknown]
  - Product after taste [Unknown]
  - Product taste abnormal [Unknown]
  - Product colour issue [Unknown]
